FAERS Safety Report 23819793 (Version 1)
Quarter: 2024Q2

REPORT INFORMATION
  Report Type: Spontaneous
  Country: GB (occurrence: GB)
  Receive Date: 20240506
  Receipt Date: 20240506
  Transmission Date: 20240716
  Serious: Yes (Death)
  Sender: FDA-Public Use
  Company Number: GB-MYLANLABS-2023M1131872

PATIENT
  Age: 84 Year
  Sex: Male

DRUGS (1)
  1. CLOZARIL [Suspect]
     Active Substance: CLOZAPINE
     Indication: Dementia with Lewy bodies
     Dosage: UNK
     Route: 048
     Dates: start: 20231212, end: 20240424

REACTIONS (5)
  - Death [Fatal]
  - Malaise [Unknown]
  - Dysphagia [Unknown]
  - Palliative care [Unknown]
  - Off label use [Unknown]

NARRATIVE: CASE EVENT DATE: 20231212
